FAERS Safety Report 8714635 (Version 2)
Quarter: 2013Q1

REPORT INFORMATION
  Report Type: Spontaneous
  Country: BR (occurrence: BR)
  Receive Date: 20120809
  Receipt Date: 20130305
  Transmission Date: 20140127
  Serious: Yes (Disabling)
  Sender: FDA-Public Use
  Company Number: PHHY2012BR068393

PATIENT
  Sex: Female

DRUGS (1)
  1. DIOVAN AMLO FIX [Suspect]
     Indication: HYPERTENSION
     Dosage: 1 DF (VALS 320MG, AMLO 5MG) DAILY
     Route: 048

REACTIONS (6)
  - Fall [Recovering/Resolving]
  - Upper limb fracture [Recovering/Resolving]
  - Hypokinesia [Unknown]
  - Osteoporosis [Not Recovered/Not Resolved]
  - Depression [Recovering/Resolving]
  - Blood cholesterol increased [Recovered/Resolved]
